FAERS Safety Report 15003628 (Version 1)
Quarter: 2018Q2

REPORT INFORMATION
  Report Type: Report from Study
  Country: AU (occurrence: AU)
  Receive Date: 20180613
  Receipt Date: 20180613
  Transmission Date: 20180711
  Serious: Yes (Other)
  Sender: FDA-Public Use
  Company Number: AU-REGENERON PHARMACEUTICALS, INC.-2018-25888

PATIENT

DRUGS (1)
  1. EYLEA [Suspect]
     Active Substance: AFLIBERCEPT
     Indication: DIABETIC RETINAL OEDEMA
     Dosage: 6 WEEKLY
     Route: 031
     Dates: start: 20170622

REACTIONS (3)
  - Inappropriate schedule of drug administration [Unknown]
  - Glaucoma [Recovered/Resolved]
  - Cataract [Recovered/Resolved]
